FAERS Safety Report 6247515-1 (Version None)
Quarter: 2009Q2

REPORT INFORMATION
  Report Type: 
  Country: None (occurrence: None)
  Receive Date: 20090626
  Receipt Date: 20090616
  Transmission Date: 20091009
  Serious: Yes (Other)
  Sender: FDA-Public Use
  Company Number: FR-PFIZER INC-2009227555

PATIENT
  Age: 47 Year

DRUGS (1)
  1. DOSTINEX [Suspect]
     Dosage: 0.25 MG, 1X/DAY
     Dates: start: 20020101, end: 20090601

REACTIONS (2)
  - BUNDLE BRANCH BLOCK LEFT [None]
  - BUNDLE BRANCH BLOCK RIGHT [None]
